FAERS Safety Report 14077233 (Version 1)
Quarter: 2017Q4

REPORT INFORMATION
  Report Type: Spontaneous
  Country: FR (occurrence: FR)
  Receive Date: 20171012
  Receipt Date: 20171012
  Transmission Date: 20180321
  Serious: Yes (Other)
  Sender: FDA-Public Use
  Company Number: FR-MERCK KGAA-2029720

PATIENT
  Age: 63 Year
  Sex: Female

DRUGS (1)
  1. NOVOTHYROX [Suspect]
     Active Substance: LEVOTHYROXINE SODIUM
     Indication: THYROIDECTOMY
     Route: 048
     Dates: start: 201705, end: 20170831

REACTIONS (13)
  - Decreased appetite [Unknown]
  - Disturbance in attention [Unknown]
  - Diarrhoea [Unknown]
  - Arthralgia [Unknown]
  - Blood thyroid stimulating hormone normal [Unknown]
  - Vertigo [Recovered/Resolved]
  - Nausea [Recovered/Resolved]
  - Myalgia [Unknown]
  - Ocular discomfort [Unknown]
  - Dry mouth [Unknown]
  - Asthenia [Unknown]
  - Diffuse alopecia [Unknown]
  - Urticaria [Unknown]

NARRATIVE: CASE EVENT DATE: 201707
